FAERS Safety Report 11965551 (Version 1)
Quarter: 2016Q1

REPORT INFORMATION
  Report Type: Spontaneous
  Country: US (occurrence: None)
  Receive Date: 20160125
  Receipt Date: 20160125
  Transmission Date: 20160526
  Serious: No
  Sender: FDA-Public Use
  Company Number: None

PATIENT
  Age: 51 Year
  Sex: Female
  Weight: 68.95 kg

DRUGS (3)
  1. DYMISTA [Suspect]
     Active Substance: AZELASTINE HYDROCHLORIDE\FLUTICASONE PROPIONATE
     Indication: RHINITIS ALLERGIC
     Dosage: 1 SPRAY EACH NOSTRIL?NASAL SPRAY
     Route: 045
     Dates: start: 20160122, end: 20160123
  2. OTC PAIN RELIEVERS [Concomitant]
     Active Substance: UNSPECIFIED INGREDIENT
  3. ALLERGY MEDICINES (CLARITIN, FLONASE) [Concomitant]

REACTIONS (5)
  - Somnolence [None]
  - Paraesthesia [None]
  - Muscle contractions involuntary [None]
  - Hunger [None]
  - Tremor [None]

NARRATIVE: CASE EVENT DATE: 20160123
